FAERS Safety Report 12608164 (Version 1)
Quarter: 2016Q3

REPORT INFORMATION
  Report Type: Spontaneous
  Country: FR (occurrence: FR)
  Receive Date: 20160729
  Receipt Date: 20160729
  Transmission Date: 20161109
  Serious: Yes (Other)
  Sender: FDA-Public Use
  Company Number: FR-MYLANLABS-2015M1012348

PATIENT

DRUGS (1)
  1. INDAPAMIDE MYLAN [Suspect]
     Active Substance: INDAPAMIDE
     Indication: HYPERTENSION

REACTIONS (4)
  - Constipation [Unknown]
  - Decreased appetite [Unknown]
  - Back pain [Recovered/Resolved]
  - Intestinal obstruction [Unknown]
